FAERS Safety Report 9147303 (Version 1)
Quarter: 2013Q1

REPORT INFORMATION
  Report Type: Spontaneous
  Country: AT (occurrence: AT)
  Receive Date: 20130307
  Receipt Date: 20130307
  Transmission Date: 20140127
  Serious: Yes (Death)
  Sender: FDA-Public Use
  Company Number: AT-PFIZER INC-2013070249

PATIENT
  Sex: Female
  Weight: 90 kg

DRUGS (3)
  1. ECALTA [Suspect]
     Indication: CANDIDA TEST POSITIVE
     Dosage: 200 MG, SINGLE
  2. PERFALGAN [Concomitant]
     Dosage: 1 G, 4X/DAY
  3. TAZONAM [Concomitant]
     Dosage: 4.5 G, 3X/DAY

REACTIONS (1)
  - Hepatic failure [Fatal]
